FAERS Safety Report 7814536-4 (Version None)
Quarter: 2011Q4

REPORT INFORMATION
  Report Type: 
  Country: None (occurrence: None)
  Receive Date: 20111014
  Receipt Date: 20111006
  Transmission Date: 20120403
  Serious: Yes (Hospitalization)
  Sender: FDA-Public Use
  Company Number: IL-SANOFI-AVENTIS-2011SA048182

PATIENT
  Age: 75 Year
  Sex: Female
  Weight: 75 kg

DRUGS (13)
  1. WARFARIN SODIUM [Concomitant]
     Route: 065
  2. SIMVASTATIN [Concomitant]
     Route: 065
  3. DOXAZOSIN MESYLATE [Concomitant]
     Route: 065
  4. DRONEDARONE HCL [Suspect]
     Indication: ATRIAL FIBRILLATION
     Route: 048
     Dates: start: 20110116, end: 20110119
  5. DIGOXIN [Concomitant]
  6. FUROSEMIDE [Concomitant]
     Route: 065
  7. VALSARTAN [Concomitant]
     Route: 065
  8. CILAZAPRIL [Concomitant]
  9. NORMITEN [Concomitant]
  10. AMLODIPINE [Concomitant]
     Route: 065
  11. LIPIDAL ^PHARMABEST^ [Concomitant]
  12. GLUCOPHAGE [Concomitant]
  13. DILTIAZEM HCL [Concomitant]

REACTIONS (1)
  - VENTRICULAR TACHYCARDIA [None]
